APPROVED DRUG PRODUCT: DIGOXIN
Active Ingredient: DIGOXIN
Strength: 0.125MG
Dosage Form/Route: TABLET;ORAL
Application: A215307 | Product #001 | TE Code: AB
Applicant: NOVITIUM PHARMA LLC
Approved: Nov 22, 2021 | RLD: No | RS: No | Type: RX